FAERS Safety Report 10175703 (Version 1)
Quarter: 2014Q2

REPORT INFORMATION
  Report Type: Spontaneous
  Country: US (occurrence: US)
  Receive Date: 20140516
  Receipt Date: 20140516
  Transmission Date: 20141212
  Serious: Yes (Death)
  Sender: FDA-Public Use
  Company Number: US-JNJFOC-20140508287

PATIENT
  Sex: 0

DRUGS (2)
  1. HALOPERIDOL [Suspect]
     Indication: DEMENTIA
     Route: 065
  2. RISPERIDONE [Suspect]
     Indication: DEMENTIA
     Route: 065

REACTIONS (1)
  - Death [Fatal]
